FAERS Safety Report 13984240 (Version 6)
Quarter: 2017Q4

REPORT INFORMATION
  Report Type: Spontaneous
  Country: DK (occurrence: DK)
  Receive Date: 20170918
  Receipt Date: 20171004
  Transmission Date: 20180321
  Serious: Yes (Death, Hospitalization)
  Sender: FDA-Public Use
  Company Number: DK-PFIZER INC-2017397658

PATIENT
  Age: 61 Year
  Sex: Male

DRUGS (7)
  1. SALAZOPYRIN [Suspect]
     Active Substance: SULFASALAZINE
     Indication: RHEUMATOID ARTHRITIS
     Dosage: 500 MG, 1X/DAY
     Route: 005
  2. ARAVA [Suspect]
     Active Substance: LEFLUNOMIDE
     Indication: RHEUMATOID ARTHRITIS
     Dosage: 20 MG, DAILY
     Route: 048
     Dates: start: 20170313, end: 20170815
  3. PARACETAMOL [Concomitant]
     Active Substance: ACETAMINOPHEN
     Dosage: UNK
  4. PREDNISOLON /00016201/ [Concomitant]
     Active Substance: PREDNISOLONE
     Dosage: UNK
  5. REMSIMA [Suspect]
     Active Substance: INFLIXIMAB
     Indication: RHEUMATOID ARTHRITIS
     Dosage: 200 MG EVERY 8 WEEKS, STRENGTH: 200 MG IN 250 ML NACL
     Route: 042
     Dates: start: 201707, end: 201707
  6. IBUPROFEN. [Concomitant]
     Active Substance: IBUPROFEN
     Dosage: UNK
  7. CLARITHROMYCIN. [Concomitant]
     Active Substance: CLARITHROMYCIN
     Dosage: UNK

REACTIONS (7)
  - Cardiac failure [Fatal]
  - Dyspnoea [Fatal]
  - Interstitial lung disease [Fatal]
  - Acute respiratory failure [Fatal]
  - Pleural effusion [Fatal]
  - Pneumothorax [Fatal]
  - Pneumonitis [Fatal]

NARRATIVE: CASE EVENT DATE: 201705
